FAERS Safety Report 6769955-4 (Version None)
Quarter: 2010Q2

REPORT INFORMATION
  Report Type: 
  Country: None (occurrence: None)
  Receive Date: 20100615
  Receipt Date: 20100607
  Transmission Date: 20101027
  Serious: Yes (Other)
  Sender: FDA-Public Use
  Company Number: B0659849A

PATIENT
  Age: 35 Year
  Sex: Male

DRUGS (4)
  1. PAXIL [Suspect]
     Indication: DEPRESSION
     Dosage: 20MG PER DAY
     Route: 048
     Dates: start: 20100517, end: 20100531
  2. GASMOTIN [Concomitant]
     Indication: GASTROINTESTINAL HYPOMOTILITY
     Route: 048
     Dates: start: 20100517, end: 20100531
  3. RIZE [Concomitant]
     Indication: ANXIETY
     Route: 048
     Dates: start: 20100517, end: 20100531
  4. MEILAX [Concomitant]
     Indication: INSOMNIA
     Route: 048
     Dates: start: 20100525, end: 20100531

REACTIONS (1)
  - NEUROLEPTIC MALIGNANT SYNDROME [None]
